FAERS Safety Report 7637136-8 (Version None)
Quarter: 2011Q3

REPORT INFORMATION
  Report Type: 
  Country: None (occurrence: None)
  Receive Date: 20110726
  Receipt Date: 20110715
  Transmission Date: 20111222
  Serious: Yes (Death, Other)
  Sender: FDA-Public Use
  Company Number: GB-MPIJNJ-2011-02880

PATIENT

DRUGS (1)
  1. VELCADE [Suspect]
     Indication: PROSTATE CANCER
     Dosage: 1.6 MG/M2, UNK

REACTIONS (4)
  - PULMONARY EMBOLISM [None]
  - OFF LABEL USE [None]
  - OVERDOSE [None]
  - PROSTATE CANCER [None]
